FAERS Safety Report 23839784 (Version 1)
Quarter: 2024Q2

REPORT INFORMATION
  Report Type: Spontaneous
  Country: US (occurrence: None)
  Receive Date: 20240510
  Receipt Date: 20240510
  Transmission Date: 20240716
  Serious: Yes (Hospitalization)
  Sender: FDA-Public Use
  Company Number: US-ROCHE-3557617

PATIENT
  Sex: Male

DRUGS (2)
  1. HEMLIBRA [Suspect]
     Active Substance: EMICIZUMAB-KXWH
     Indication: Factor VIII deficiency
     Dosage: STRENGTH: 60MG/0.4ML
     Route: 058
     Dates: start: 201207
  2. ELOCTATE [Concomitant]
     Active Substance: EFMOROCTOCOG ALFA
     Dosage: 3321 UNITS
     Route: 042

REACTIONS (1)
  - Postoperative wound infection [Unknown]
